FAERS Safety Report 6975128-2 (Version None)
Quarter: 2010Q3

REPORT INFORMATION
  Report Type: 
  Country: None (occurrence: None)
  Receive Date: 20100910
  Receipt Date: 20090211
  Transmission Date: 20110219
  Serious: No
  Sender: FDA-Public Use
  Company Number: US-WYE-H08191009

PATIENT
  Sex: Female
  Weight: 97.61 kg

DRUGS (4)
  1. PRISTIQ [Suspect]
     Indication: STRESS
     Dosage: STARTED BY SPLITTING THE TABLET
     Route: 048
     Dates: start: 20090207, end: 20090209
  2. PRISTIQ [Suspect]
     Route: 048
     Dates: start: 20090210
  3. HYDROCODONE [Concomitant]
  4. AMITRIPTYLINE HCL [Concomitant]

REACTIONS (2)
  - DIZZINESS [None]
  - DRUG EXPOSURE DURING PREGNANCY [None]
